FAERS Safety Report 7907050-9 (Version None)
Quarter: 2011Q4

REPORT INFORMATION
  Report Type: 
  Country: None (occurrence: None)
  Receive Date: 20111110
  Receipt Date: 20111104
  Transmission Date: 20120403
  Serious: Yes (Hospitalization)
  Sender: FDA-Public Use
  Company Number: US-B.I. PHARMACEUTICALS,INC./RIDGEFIELD-2011-BP-24139BP

PATIENT
  Age: 87 Year
  Sex: Female
  Weight: 80 kg

DRUGS (15)
  1. LISINOPRIL [Concomitant]
     Dosage: 20 MG
  2. ZOCOR [Concomitant]
     Dosage: 40 MG
  3. IMMUNE ESTER [Concomitant]
     Dosage: 1000 MG
  4. PRADAXA [Suspect]
     Indication: ATRIAL FIBRILLATION
     Dosage: 150 MG
     Route: 048
  5. K [Concomitant]
     Dosage: 10 MEQ
  6. RANITIDINE [Concomitant]
     Dosage: 300 MG
  7. CLARITIN [Concomitant]
     Dosage: 10 MG
  8. NIFEDIPINE [Concomitant]
     Dosage: 90 MG
  9. VITAMIN D [Concomitant]
     Dosage: 1000 U
  10. ASPIRIN [Concomitant]
     Dosage: 81 MG
  11. ATENOLOL [Concomitant]
     Dosage: 25 MG
  12. LEVOTHYROXINE SODIUM [Concomitant]
     Dosage: 88 MCG
  13. CALCIUM [Concomitant]
  14. WARFARIN SODIUM [Concomitant]
  15. PRILOSEC [Concomitant]
     Dosage: 40 MG

REACTIONS (2)
  - HAEMATOCHEZIA [None]
  - GASTROINTESTINAL HAEMORRHAGE [None]
